FAERS Safety Report 5477864-6 (Version None)
Quarter: 2007Q4

REPORT INFORMATION
  Report Type: 
  Country: None (occurrence: None)
  Receive Date: 20071004
  Receipt Date: 20070618
  Transmission Date: 20080405
  Serious: No
  Sender: FDA-Public Use
  Company Number: US-BOEHRINGER INGELHEIM PHARMACEUTICALS, INC.-2007-BP-19525BP

PATIENT
  Sex: Male

DRUGS (34)
  1. MIRAPEX [Suspect]
     Indication: PARKINSON'S DISEASE
     Route: 048
     Dates: start: 19940321, end: 19960222
  2. VITAMIN CAP [Concomitant]
     Indication: NUTRITIONAL SUPPORT
     Dates: start: 19940106, end: 19950110
  3. TUMS [Concomitant]
     Indication: DYSPEPSIA
  4. ELDEPRYL [Concomitant]
     Indication: PARKINSON'S DISEASE
  5. VACONASE NASAL SPRAY [Concomitant]
     Indication: SEASONAL ALLERGY
     Route: 045
  6. KENALOG [Concomitant]
     Indication: HYPERSENSITIVITY
     Route: 045
  7. PHENYLPROP CHLORIDE [Concomitant]
     Dates: end: 19940527
  8. TRIHEXYPHENIDYL HCL [Concomitant]
  9. ABSORBASE [Concomitant]
     Indication: DRY SKIN
     Route: 061
  10. SELEGILINE HCL [Concomitant]
  11. CLOBETASOL PROPEMOLLIENT [Concomitant]
  12. AMANTADINE HCL [Concomitant]
  13. ACYCLOVIR [Concomitant]
     Indication: VIRAL INFECTION
  14. HEPATITIS VACCINE [Concomitant]
  15. IBUPROFEN [Concomitant]
     Indication: MUSCULOSKELETAL PAIN
  16. ST. JOHN'S WORT [Concomitant]
     Indication: DEPRESSION
  17. ASCORBIC ACID [Concomitant]
  18. GINKO [Concomitant]
  19. VITAMIN E [Concomitant]
  20. DERMA CERIN TOPICAL CREAM [Concomitant]
  21. UREA [Concomitant]
  22. VITAMIN B [Concomitant]
  23. COD LIVER OIL [Concomitant]
  24. ASCORBIC ACID [Concomitant]
  25. CALCIUM [Concomitant]
  26. ECHINACEA [Concomitant]
  27. ENERGY DRINK [Concomitant]
     Indication: DEPRESSION
  28. CARBIDOPA AND LEVODOPA [Concomitant]
  29. VARDENAFIL [Concomitant]
     Indication: ERECTILE DYSFUNCTION
  30. VIAGRA [Concomitant]
     Indication: ERECTILE DYSFUNCTION
  31. ORNADE [Concomitant]
     Indication: SEASONAL ALLERGY
  32. SUPHEDRIN SINUS [Concomitant]
     Indication: SEASONAL ALLERGY
  33. COLOCYNTHIS [Concomitant]
     Indication: MUSCLE SPASMS
  34. ASPIRIN [Concomitant]
     Indication: HEADACHE

REACTIONS (7)
  - AGITATION [None]
  - ALCOHOL USE [None]
  - INSOMNIA [None]
  - IRRITABILITY [None]
  - MANIA [None]
  - OBSESSIVE-COMPULSIVE DISORDER [None]
  - PATHOLOGICAL GAMBLING [None]
